FAERS Safety Report 6842514-0 (Version None)
Quarter: 2010Q3

REPORT INFORMATION
  Report Type: 
  Country: None (occurrence: None)
  Receive Date: 20100714
  Receipt Date: 20070730
  Transmission Date: 20110219
  Serious: No
  Sender: FDA-Public Use
  Company Number: US-PFIZER INC-2007065332

PATIENT
  Sex: Female
  Weight: 74 kg

DRUGS (2)
  1. CHANTIX [Suspect]
     Indication: EX-TOBACCO USER
     Dates: start: 20060901
  2. NORVASC [Concomitant]
     Indication: HYPERTENSION

REACTIONS (4)
  - ABNORMAL DREAMS [None]
  - ASTHMA [None]
  - HUNGER [None]
  - INSOMNIA [None]
